FAERS Safety Report 4744100-5 (Version None)
Quarter: 2005Q3

REPORT INFORMATION
  Report Type: 
  Country: None (occurrence: None)
  Receive Date: 20050812
  Receipt Date: 20050802
  Transmission Date: 20060218
  Serious: Yes (Hospitalization, Other)
  Sender: FDA-Public Use
  Company Number: DE-JNJFOC-20050801170

PATIENT
  Sex: Male

DRUGS (4)
  1. RISPERDAL [Suspect]
     Indication: DRUG USE FOR UNKNOWN INDICATION
     Dosage: TAKEN FOR A LONG PERIOD OF TIME.
     Route: 048
  2. MELPERON [Concomitant]
     Dosage: REPORTED AS A SMALL DOSE
  3. ORIFIL [Concomitant]
     Dosage: DOSE INCREASE
  4. ORIFIL [Concomitant]

REACTIONS (3)
  - HYPONATRAEMIA [None]
  - PARTIAL SEIZURES WITH SECONDARY GENERALISATION [None]
  - STATUS EPILEPTICUS [None]
